FAERS Safety Report 11872646 (Version 2)
Quarter: 2016Q4

REPORT INFORMATION
  Report Type: Spontaneous
  Country: DK (occurrence: DK)
  Receive Date: 20151228
  Receipt Date: 20161130
  Transmission Date: 20170206
  Serious: Yes (Disabling)
  Sender: FDA-Public Use
  Company Number: DK-TEVA-619542ACC

PATIENT
  Sex: Female

DRUGS (3)
  1. EFEXOR DEPOT [Suspect]
     Active Substance: VENLAFAXINE HYDROCHLORIDE
     Indication: DEPRESSION
     Dosage: 75 MILLIGRAM DAILY; STRENGTH: 75 MG
     Route: 048
     Dates: start: 2009
  2. LAMOTRIGIN ^BMM PHARMA^ [Suspect]
     Active Substance: LAMOTRIGINE
     Indication: AFFECTIVE DISORDER
     Dosage: 250 MILLIGRAM DAILY;
     Route: 048
     Dates: start: 2009
  3. QUETIAPINE ^TEVA^ [Suspect]
     Active Substance: QUETIAPINE
     Indication: AFFECTIVE DISORDER
     Dosage: 200 MILLIGRAM DAILY; STRENGTH: 200 MG
     Route: 048
     Dates: start: 2009

REACTIONS (4)
  - Dry mouth [Not Recovered/Not Resolved]
  - Tooth loss [Not Recovered/Not Resolved]
  - Dental caries [Not Recovered/Not Resolved]
  - Tooth fracture [Not Recovered/Not Resolved]

NARRATIVE: CASE EVENT DATE: 2009
